FAERS Safety Report 11754163 (Version 2)
Quarter: 2015Q4

REPORT INFORMATION
  Report Type: Spontaneous
  Country: DE (occurrence: DE)
  Receive Date: 20151119
  Receipt Date: 20151125
  Transmission Date: 20160304
  Serious: Yes (Other)
  Sender: FDA-Public Use
  Company Number: PHHY2015DE150356

PATIENT
  Age: 66 Year
  Sex: Female

DRUGS (15)
  1. ROPIVACAINE [Concomitant]
     Active Substance: ROPIVACAINE
     Dosage: 30 MG/H, UNK
     Route: 041
  2. VERAPAMIL [Suspect]
     Active Substance: VERAPAMIL HYDROCHLORIDE
     Indication: HYPERTENSION
     Route: 065
  3. SUFENTANIL [Concomitant]
     Active Substance: SUFENTANIL
     Indication: PRODUCT USED FOR UNKNOWN INDICATION
     Dosage: 10 UG, UNK
     Route: 065
  4. CISPLATIN. [Suspect]
     Active Substance: CISPLATIN
     Indication: OVARIAN CANCER
     Dosage: 50 MG/M2, IN 250 ML
     Route: 033
  5. PHYSIONEAL [Concomitant]
     Active Substance: CALCIUM CHLORIDE\DEXTROSE\MAGNESIUM CHLORIDE\SODIUM CHLORIDE SOLUTION
     Indication: OVARIAN CANCER
     Route: 065
  6. ROPIVACAINE [Concomitant]
     Active Substance: ROPIVACAINE
     Indication: PRODUCT USED FOR UNKNOWN INDICATION
     Dosage: 20 MG, UNK
     Route: 065
  7. TOPOTECAN [Suspect]
     Active Substance: TOPOTECAN\TOPOTECAN HYDROCHLORIDE
     Indication: OVARIAN CANCER
     Route: 065
  8. OLANZAPINE. [Suspect]
     Active Substance: OLANZAPINE
     Indication: DEPRESSION
     Route: 065
  9. FLUOXETINE [Suspect]
     Active Substance: FLUOXETINE HYDROCHLORIDE
     Indication: DEPRESSION
     Route: 065
  10. SEVOFLURANE. [Concomitant]
     Active Substance: SEVOFLURANE
     Indication: ANAESTHESIA
     Route: 065
  11. SUFENTANIL [Concomitant]
     Active Substance: SUFENTANIL
     Dosage: 3 UG/HR, UNK
     Route: 041
  12. PROPOFOL. [Concomitant]
     Active Substance: PROPOFOL
     Indication: ANAESTHESIA
     Dosage: 2 MG/KG, UNK
     Route: 065
  13. CARBOPLATIN. [Suspect]
     Active Substance: CARBOPLATIN
     Indication: OVARIAN CANCER
     Route: 065
  14. ROPIVACAINE [Concomitant]
     Active Substance: ROPIVACAINE
     Dosage: 0.375 %, IN 10 ML
     Route: 065
  15. SUFENTANIL [Concomitant]
     Active Substance: SUFENTANIL
     Dosage: 0.2 UG/KG, UNK
     Route: 065

REACTIONS (4)
  - Cardiac failure chronic [Recovered/Resolved]
  - Metastases to peritoneum [Unknown]
  - Ventricular fibrillation [Recovered/Resolved]
  - Ventricular tachyarrhythmia [Recovered/Resolved]
